FAERS Safety Report 12908495 (Version 1)
Quarter: 2016Q4

REPORT INFORMATION
  Report Type: Spontaneous
  Country: FR (occurrence: FR)
  Receive Date: 20161103
  Receipt Date: 20161103
  Transmission Date: 20170207
  Serious: Yes (Hospitalization, Other)
  Sender: FDA-Public Use
  Company Number: FR-ASTRAZENECA-2016SF14500

PATIENT
  Age: 50 Year
  Sex: Male

DRUGS (2)
  1. BRILIQUE [Suspect]
     Active Substance: TICAGRELOR
     Indication: ACUTE CORONARY SYNDROME
     Route: 048
     Dates: start: 20160921, end: 20160923
  2. BISOPROLOL [Suspect]
     Active Substance: BISOPROLOL
     Indication: ACUTE CORONARY SYNDROME
     Route: 065
     Dates: start: 20160922, end: 20160923

REACTIONS (2)
  - Sinus bradycardia [Recovered/Resolved]
  - Ventricular tachycardia [Unknown]

NARRATIVE: CASE EVENT DATE: 20160923
